FAERS Safety Report 10472784 (Version 3)
Quarter: 2014Q4

REPORT INFORMATION
  Report Type: Spontaneous
  Country: JP (occurrence: JP)
  Receive Date: 20140924
  Receipt Date: 20141031
  Transmission Date: 20150528
  Serious: Yes (Death, Life-Threatening)
  Sender: FDA-Public Use
  Company Number: JP-JNJFOC-20140903981

PATIENT
  Age: 55 Year
  Sex: Male

DRUGS (6)
  1. TAPENTA [Suspect]
     Active Substance: TAPENTADOL HYDROCHLORIDE
     Indication: CANCER PAIN
     Dosage: 100 MG ONCE A DAY
     Route: 048
     Dates: start: 20140828, end: 20140902
  2. CRAVIT [Suspect]
     Active Substance: LEVOFLOXACIN
     Indication: INFECTION
     Route: 048
     Dates: start: 20140828, end: 20140903
  3. CERCINE [Suspect]
     Active Substance: DIAZEPAM
     Indication: CANCER PAIN
     Route: 048
     Dates: start: 20140827, end: 20140902
  4. TETRAMIDE [Concomitant]
     Active Substance: MIANSERIN
     Indication: CANCER PAIN
     Route: 048
     Dates: start: 20140827
  5. POLAPREZINC [Concomitant]
     Indication: PRODUCT USED FOR UNKNOWN INDICATION
     Route: 048
     Dates: start: 2014
  6. LOXOPROFEN [Concomitant]
     Active Substance: LOXOPROFEN
     Indication: CANCER PAIN
     Route: 048
     Dates: start: 2014

REACTIONS (4)
  - Dyspnoea [Not Recovered/Not Resolved]
  - Alanine aminotransferase increased [Recovered/Resolved]
  - Aspartate aminotransferase increased [Recovered/Resolved]
  - Lung adenocarcinoma [Fatal]

NARRATIVE: CASE EVENT DATE: 20140901
